FAERS Safety Report 6246145-5 (Version None)
Quarter: 2009Q2

REPORT INFORMATION
  Report Type: 
  Country: None (occurrence: None)
  Receive Date: 20090626
  Receipt Date: 20090616
  Transmission Date: 20091009
  Serious: No
  Sender: FDA-Public Use
  Company Number: A0780142A

PATIENT
  Age: 53 Year
  Sex: Female

DRUGS (3)
  1. SUMATRIPTAN SUCCINATE [Suspect]
     Route: 048
     Dates: start: 20090422
  2. EXCEDRIN (MIGRAINE) [Concomitant]
     Indication: HEADACHE
  3. ZANTAC [Concomitant]
     Indication: ULCER

REACTIONS (2)
  - DRUG INEFFECTIVE [None]
  - PRODUCT QUALITY ISSUE [None]
